FAERS Safety Report 8209372-3 (Version None)
Quarter: 2012Q1

REPORT INFORMATION
  Report Type: 
  Country: None (occurrence: None)
  Receive Date: 20120314
  Receipt Date: 20120307
  Transmission Date: 20120608
  Serious: Yes (Hospitalization)
  Sender: FDA-Public Use
  Company Number: US-BAYER-2011-105390

PATIENT
  Age: 37 Year
  Sex: Female
  Weight: 54.422 kg

DRUGS (9)
  1. OXYCODONE HCL [Concomitant]
     Dosage: 5 MG,  DAILY AS NEEDED
     Dates: start: 20070611
  2. PERCOCET [Concomitant]
  3. YAZ [Suspect]
     Indication: ACNE
     Dosage: UNK
     Dates: start: 20070401, end: 20070613
  4. ROBITUSSIN WITH CODEINE [Concomitant]
     Indication: BRONCHITIS
     Dosage: UNK UNK, PRN
     Route: 048
     Dates: start: 20070314
  5. TORADOL [Concomitant]
     Dosage: 10 MG, DAILY 1-2
     Route: 030
     Dates: start: 20070611
  6. YAZ [Suspect]
     Indication: CONTRACEPTION
  7. PHENERGAN [Concomitant]
     Indication: PAIN
     Route: 030
  8. ZITHROMAX [Concomitant]
     Indication: BRONCHITIS
     Dosage: UNK
     Dates: start: 20070314
  9. DEMEROL [Concomitant]
     Route: 030

REACTIONS (2)
  - PULMONARY EMBOLISM [None]
  - PAIN [None]
